FAERS Safety Report 5707280-0 (Version None)
Quarter: 2008Q2

REPORT INFORMATION
  Report Type: 
  Country: None (occurrence: None)
  Receive Date: 20080416
  Receipt Date: 20080408
  Transmission Date: 20081010
  Serious: Yes (Other)
  Sender: FDA-Public Use
  Company Number: PHFR2008GB00997

PATIENT
  Sex: Male

DRUGS (3)
  1. TEGRETOL [Suspect]
     Dosage: UNK, UNK
     Route: 064
     Dates: start: 19980825, end: 19990222
  2. AMITRIPTYLINE HCL [Concomitant]
     Route: 064
  3. TEGRETOL [Suspect]
     Route: 064

REACTIONS (2)
  - FOETAL ANTICONVULSANT SYNDROME [None]
  - HEART DISEASE CONGENITAL [None]
